FAERS Safety Report 7732832-6 (Version None)
Quarter: 2011Q3

REPORT INFORMATION
  Report Type: 
  Country: None (occurrence: None)
  Receive Date: 20110907
  Receipt Date: 20110829
  Transmission Date: 20111222
  Serious: Yes (Other)
  Sender: FDA-Public Use
  Company Number: ZA-JNJFOC-20110805823

PATIENT
  Sex: Male
  Weight: 72 kg

DRUGS (15)
  1. REVELLEX [Suspect]
     Route: 042
     Dates: start: 20110810
  2. REVELLEX [Suspect]
     Indication: ANKYLOSING SPONDYLITIS
     Route: 042
     Dates: start: 20110810
  3. LEVOTHYROXINE SODIUM [Concomitant]
     Indication: HYPOTHYROIDISM
     Route: 048
  4. AMITRIPTYLINE HCL [Concomitant]
     Route: 065
  5. REVELLEX [Suspect]
     Route: 042
     Dates: start: 20110110
  6. SIMVASTATIN [Concomitant]
     Indication: HYPERCHOLESTEROLAEMIA
     Route: 048
  7. CYMBALTA [Concomitant]
     Indication: ARTHRITIS
     Route: 048
  8. CLONAZEPAM [Concomitant]
     Route: 048
  9. SULFASALAZINE [Concomitant]
     Indication: IRRITABLE BOWEL SYNDROME
     Route: 048
  10. REVELLEX [Suspect]
     Route: 042
     Dates: start: 20110110
  11. REVELLEX [Suspect]
     Route: 042
     Dates: start: 20110615
  12. NEXIUM [Concomitant]
     Indication: PEPTIC ULCER
     Route: 048
  13. REVELLEX [Suspect]
     Indication: PSORIATIC ARTHROPATHY
     Route: 042
     Dates: start: 20110615
  14. RENITEC M [Concomitant]
     Indication: HYPERTENSION
     Route: 048
  15. PROTHIADEN [Concomitant]
     Route: 048

REACTIONS (7)
  - BLOOD PRESSURE INCREASED [None]
  - DIAPHRAGMALGIA [None]
  - OXYGEN SATURATION DECREASED [None]
  - CHEST PAIN [None]
  - INFUSION RELATED REACTION [None]
  - BLOOD GLUCOSE INCREASED [None]
  - HEART RATE INCREASED [None]
